FAERS Safety Report 19978856 (Version 1)
Quarter: 2021Q4

REPORT INFORMATION
  Report Type: Spontaneous
  Country: US (occurrence: US)
  Receive Date: 20211021
  Receipt Date: 20211021
  Transmission Date: 20220303
  Serious: Yes (Death)
  Sender: FDA-Public Use
  Company Number: None

PATIENT
  Sex: Male

DRUGS (1)
  1. DROXIDOPA [Suspect]
     Active Substance: DROXIDOPA
     Indication: Multiple system atrophy
     Dosage: ?          OTHER FREQUENCY:THREE TIMES DAILY;
     Route: 048
     Dates: start: 20210302

REACTIONS (1)
  - Death [None]
